FAERS Safety Report 24870385 (Version 4)
Quarter: 2025Q2

REPORT INFORMATION
  Report Type: Spontaneous
  Country: US (occurrence: US)
  Receive Date: 20250121
  Receipt Date: 20250513
  Transmission Date: 20250716
  Serious: No
  Sender: SANOFI AVENTIS
  Company Number: US-SA-2025SA017630

PATIENT
  Age: 68 Year
  Sex: Male

DRUGS (3)
  1. DUPIXENT [Suspect]
     Active Substance: DUPILUMAB
     Indication: Neurodermatitis
     Route: 058
     Dates: start: 20241213, end: 20241213
  2. DUPIXENT [Suspect]
     Active Substance: DUPILUMAB
     Indication: Dermatitis atopic
     Dosage: 300 MG, QOW
     Route: 030
     Dates: start: 20241227
  3. DUPIXENT [Suspect]
     Active Substance: DUPILUMAB
     Dosage: 300 MG, QOW
     Route: 058

REACTIONS (20)
  - Injection site pain [Unknown]
  - Diplopia [Unknown]
  - Lacrimation increased [Unknown]
  - Cough [Unknown]
  - Stress [Recovering/Resolving]
  - Skin haemorrhage [Unknown]
  - Nodule [Unknown]
  - Poor quality sleep [Unknown]
  - Eye discharge [Unknown]
  - Confusional state [Unknown]
  - Gait disturbance [Unknown]
  - Dizziness [Unknown]
  - Pruritus [Unknown]
  - Vision blurred [Unknown]
  - Arthralgia [Unknown]
  - Rash [Unknown]
  - Dermatitis atopic [Unknown]
  - Neurodermatitis [Unknown]
  - Eye pruritus [Unknown]
  - Incorrect route of product administration [Unknown]

NARRATIVE: CASE EVENT DATE: 20240115
